FAERS Safety Report 23658515 (Version 1)
Quarter: 2024Q1

REPORT INFORMATION
  Report Type: Spontaneous
  Country: US (occurrence: US)
  Receive Date: 20240321
  Receipt Date: 20240321
  Transmission Date: 20240409
  Serious: No
  Sender: FDA-Public Use
  Company Number: US-JNJFOC-20240351236

PATIENT
  Age: 16 Year
  Sex: Male

DRUGS (2)
  1. STELARA [Suspect]
     Active Substance: USTEKINUMAB
     Indication: Crohn^s disease
     Dosage: RECEIVED HIS 1ST INFUSION IN THE HOSPITAL ON 25-JAN-2024?HIS FIRST STELARA 90 MG INJECTION WILL BE O
     Route: 058
  2. STELARA [Suspect]
     Active Substance: USTEKINUMAB
     Dosage: RECEIVED HIS 1ST INFUSION IN THE HOSPITAL ON 25-JAN-2024?HIS FIRST STELARA 90 MG INJECTION WILL BE O
     Route: 040
     Dates: start: 20240125

REACTIONS (2)
  - Product storage error [Unknown]
  - Product dose omission issue [Unknown]
